FAERS Safety Report 16720202 (Version 1)
Quarter: 2019Q3

REPORT INFORMATION
  Report Type: Spontaneous
  Country: FR (occurrence: FR)
  Receive Date: 20190820
  Receipt Date: 20190820
  Transmission Date: 20191005
  Serious: Yes (Hospitalization)
  Sender: FDA-Public Use
  Company Number: FR-TEVA-2019-FR-1093351

PATIENT
  Age: 65 Year
  Sex: Female

DRUGS (2)
  1. AMOXICILLINE [Suspect]
     Active Substance: AMOXICILLIN
     Indication: LUNG DISORDER
     Route: 048
     Dates: start: 20180523, end: 20180523
  2. SPIFEN [Suspect]
     Active Substance: IBUPROFEN
     Indication: LUNG DISORDER
     Route: 048
     Dates: start: 20180523, end: 20180523

REACTIONS (4)
  - Pruritus [Recovered/Resolved]
  - Malaise [Recovered/Resolved]
  - Anaphylactic shock [Recovered/Resolved]
  - Oedema [Recovered/Resolved]

NARRATIVE: CASE EVENT DATE: 20180523
